FAERS Safety Report 13726991 (Version 1)
Quarter: 2017Q3

REPORT INFORMATION
  Report Type: Spontaneous
  Country: FR (occurrence: FR)
  Receive Date: 20170707
  Receipt Date: 20170707
  Transmission Date: 20171127
  Serious: Yes (Hospitalization)
  Sender: FDA-Public Use
  Company Number: FR-JNJFOC-20170700998

PATIENT
  Age: 76 Year
  Sex: Female

DRUGS (8)
  1. RISPERDAL [Suspect]
     Active Substance: RISPERIDONE
     Indication: DEMENTIA
     Dosage: 0.5 MG IN THE MORNING AND 1 MG IN THE EVENING
     Route: 048
  2. MIANSERIN [Suspect]
     Active Substance: MIANSERIN
     Indication: PRODUCT USED FOR UNKNOWN INDICATION
     Route: 048
  3. DOLIPRANE [Concomitant]
     Active Substance: ACETAMINOPHEN
     Route: 065
  4. ZYMAD [Concomitant]
     Active Substance: CHOLECALCIFEROL
     Route: 065
  5. RISPERDAL [Suspect]
     Active Substance: RISPERIDONE
     Indication: DEMENTIA
     Route: 048
  6. EBIXA [Suspect]
     Active Substance: MEMANTINE HYDROCHLORIDE
     Indication: DEMENTIA
     Route: 048
  7. SERESTA [Suspect]
     Active Substance: OXAZEPAM
     Indication: ANXIETY
     Dosage: 1 DOSE FORM TWICE A DAY
     Route: 048
  8. TRANSIPEG [Concomitant]
     Active Substance: POLYETHYLENE GLYCOL 3350
     Route: 065

REACTIONS (3)
  - Fall [Recovered/Resolved with Sequelae]
  - Pelvic fracture [Recovering/Resolving]
  - Atrial fibrillation [Unknown]

NARRATIVE: CASE EVENT DATE: 201706
